FAERS Safety Report 6285269-3 (Version None)
Quarter: 2009Q3

REPORT INFORMATION
  Report Type: 
  Country: None (occurrence: None)
  Receive Date: 20090723
  Receipt Date: 20090713
  Transmission Date: 20100115
  Serious: Yes (Life-Threatening, Other)
  Sender: FDA-Public Use
  Company Number: 2009AL004618

PATIENT
  Age: 54 Year
  Sex: Male

DRUGS (7)
  1. METFORMIN HCL [Suspect]
     Indication: DIABETES MELLITUS
     Dosage: PO
     Route: 048
  2. ACETAMINOPHEN AND CODEINE PHOSPHATE [Suspect]
     Indication: ANALGESIA
     Dosage: 2 DF; PO
     Route: 048
  3. ACETYLSALICYLIC ACID [Suspect]
  4. LAMISIL [Concomitant]
  5. HUMIRA [Concomitant]
  6. SIMVASTATIN [Concomitant]
  7. SILDENAFIL CITRATE [Concomitant]

REACTIONS (7)
  - EPSTEIN-BARR VIRUS TEST POSITIVE [None]
  - HODGKIN'S DISEASE [None]
  - LYMPHADENOPATHY [None]
  - ONYCHOMYCOSIS [None]
  - PYREXIA [None]
  - TOOTH ABSCESS [None]
  - WEIGHT INCREASED [None]
